FAERS Safety Report 22779282 (Version 3)
Quarter: 2023Q4

REPORT INFORMATION
  Report Type: Report from Study
  Country: US (occurrence: US)
  Receive Date: 20230802
  Receipt Date: 20231219
  Transmission Date: 20240110
  Serious: No
  Sender: FDA-Public Use
  Company Number: US-002147023-NVSC2023US169179

PATIENT
  Age: 6 Month
  Sex: Male
  Weight: 17.4 kg

DRUGS (1)
  1. ZOLGENSMA [Suspect]
     Active Substance: ONASEMNOGENE ABEPARVOVEC-XIOI
     Indication: Spinal muscular atrophy
     Dosage: 1 ML, (8.3 ML X 3), ONCE/SINGLE
     Route: 042
     Dates: start: 20210608, end: 20210608

REACTIONS (2)
  - Speech disorder developmental [Unknown]
  - Language disorder [Unknown]

NARRATIVE: CASE EVENT DATE: 20210608
